FAERS Safety Report 6129698 (Version 18)
Quarter: 2013Q1

REPORT INFORMATION
  Report Type: Spontaneous
  Country: US (occurrence: US)
  Receive Date: 20060918
  Receipt Date: 20130227
  Transmission Date: 20140127
  Serious: Yes (Other)
  Sender: FDA-Public Use
  Company Number: PHEH2006US11438

PATIENT
  Sex: Male
  Weight: 82.54 kg

DRUGS (57)
  1. AREDIA [Suspect]
     Indication: PLASMA CELL MYELOMA
     Dosage: 90 MG, QMO
     Route: 042
     Dates: start: 1995, end: 20020426
  2. AREDIA [Suspect]
     Dosage: UNK UKN, UNK
     Dates: start: 20020520
  3. ZOMETA [Suspect]
     Indication: PLASMA CELL MYELOMA
     Dosage: 4 MG\5ML,
     Dates: start: 20020628, end: 20051117
  4. INTERFERON [Concomitant]
  5. CHEMOTHERAPEUTICS NOS [Concomitant]
  6. COGENTIN [Concomitant]
  7. ASPIRIN ^BAYER^ [Concomitant]
  8. TOPROL XL [Concomitant]
  9. SINEMET [Concomitant]
  10. BENZTROPINE MESYLATE [Concomitant]
  11. FLOMAX ^BOEHRINGER INGELHEIM^ [Concomitant]
  12. TRAZODONE [Concomitant]
  13. PEN-VEE-K [Concomitant]
  14. VINCRISTINE + ADRIAMYCIN + DEXAMETHASONE [Concomitant]
  15. CIPROFLOXACIN [Concomitant]
  16. CELEBREX [Concomitant]
  17. ZYPREXA [Concomitant]
  18. ZOFRAN [Concomitant]
  19. VIAGRA [Concomitant]
  20. FLONASE [Concomitant]
  21. DARVOCET-N [Concomitant]
  22. FOLATE SODIUM [Concomitant]
  23. VITAMIN B COMPLEX [Concomitant]
  24. VITAMIN E [Concomitant]
  25. CALCIUM [Concomitant]
  26. MAGNESIUM [Concomitant]
  27. ZINC [Concomitant]
  28. SHARK CARTILAGE [Concomitant]
  29. TESTOSTERONE [Concomitant]
  30. BENICAR [Concomitant]
  31. LISINOPRIL [Concomitant]
  32. ZYRTEC [Concomitant]
  33. NASONEX [Concomitant]
  34. DICLOFENAC [Concomitant]
  35. LOVENOX [Concomitant]
  36. AMANTADINE [Concomitant]
  37. MERINAX [Concomitant]
  38. KLOR-CON [Concomitant]
  39. CLONIDINE [Concomitant]
  40. VITAMIN C [Concomitant]
  41. COD-LIVER OIL [Concomitant]
  42. GEODON [Concomitant]
  43. PREDNISONE [Concomitant]
  44. ALPHA LIPOIC ACID [Concomitant]
  45. VITAMIN D [Concomitant]
  46. SLEEP AID [Concomitant]
  47. HALDOL [Concomitant]
  48. ZOLOFT (SERTRALINE HYDROCHLORIDE) [Concomitant]
  49. REGLAN [Concomitant]
  50. WARFARIN [Concomitant]
  51. DEXAMETHASONE [Concomitant]
  52. LENALIDOMIDE [Concomitant]
  53. MIRAPEX ^BOEHRINGER INGELHEIM^ [Concomitant]
     Dosage: 0.5 MG, UNK
     Route: 048
  54. OXYCODONE [Concomitant]
     Route: 048
  55. AVENA SATIVA [Concomitant]
  56. RAMIPRIL [Concomitant]
  57. VELCADE [Concomitant]
     Dosage: UNK UKN, UNK
     Dates: start: 20090923

REACTIONS (119)
  - Osteonecrosis of jaw [Unknown]
  - Gingival recession [Unknown]
  - Gingival bleeding [Unknown]
  - Fibrosis [Unknown]
  - Inflammation [Unknown]
  - Gingival inflammation [Unknown]
  - Exposed bone in jaw [Unknown]
  - Deformity [Unknown]
  - Poor dental condition [Unknown]
  - Loose tooth [Unknown]
  - Wound dehiscence [Unknown]
  - Tooth infection [Unknown]
  - Wound infection [Unknown]
  - Tremor [Unknown]
  - Pain [Unknown]
  - Hypophagia [Unknown]
  - Emotional distress [Unknown]
  - General physical health deterioration [Unknown]
  - Decreased interest [Unknown]
  - Life expectancy shortened [Unknown]
  - Infection [Unknown]
  - Jaw disorder [Unknown]
  - Injury [Unknown]
  - Anxiety [Unknown]
  - Parkinson^s disease [Unknown]
  - Cognitive disorder [Unknown]
  - Amnesia [Unknown]
  - Disturbance in attention [Unknown]
  - Dementia with Lewy bodies [Unknown]
  - Dysphagia [Unknown]
  - Fatigue [Unknown]
  - Hallucination, visual [Unknown]
  - Pneumonia [Recovered/Resolved]
  - Bronchitis [Unknown]
  - Osteosclerosis [Unknown]
  - Bone density decreased [Unknown]
  - Hernia [Unknown]
  - Plasma cell myeloma [Unknown]
  - Musculoskeletal stiffness [Unknown]
  - Tourette^s disorder [Unknown]
  - Somnolence [Unknown]
  - Hypoacusis [Unknown]
  - Bone pain [Unknown]
  - Urticaria [Unknown]
  - Visual acuity reduced [Unknown]
  - Chest pain [Unknown]
  - Vertigo [Unknown]
  - Headache [Unknown]
  - Spinal osteoarthritis [Unknown]
  - Osteoporosis [Unknown]
  - Muscle strain [Unknown]
  - Hearing disability [Unknown]
  - Lacunar infarction [Unknown]
  - Gynaecomastia [Unknown]
  - Breast hyperplasia [Unknown]
  - Fall [Unknown]
  - Cholelithiasis [Unknown]
  - Acquired oesophageal web [Unknown]
  - Gastritis [Unknown]
  - Dermatophytosis [Unknown]
  - Olfactory nerve disorder [Unknown]
  - Dry eye [Unknown]
  - Gastrooesophageal reflux disease [Unknown]
  - Cataract [Unknown]
  - Nodule [Unknown]
  - Pancytopenia [Unknown]
  - Cardiac failure congestive [Unknown]
  - Mitral valve incompetence [Unknown]
  - Hypomagnesaemia [Unknown]
  - Spinal compression fracture [Unknown]
  - Back pain [Unknown]
  - Carotid artery stenosis [Unknown]
  - Presyncope [Unknown]
  - Orthostatic hypotension [Unknown]
  - Inappropriate antidiuretic hormone secretion [Unknown]
  - Hyponatraemia [Unknown]
  - Asthma [Unknown]
  - Sinus bradycardia [Unknown]
  - Coronary artery disease [Unknown]
  - Temporal arteritis [Unknown]
  - Rib fracture [Unknown]
  - Autonomic neuropathy [Unknown]
  - Cardiomyopathy [Unknown]
  - Deep vein thrombosis [Unknown]
  - Arteriosclerosis [Unknown]
  - Anaemia [Unknown]
  - Pulmonary hypertension [Unknown]
  - Renal failure [Unknown]
  - Hypokalaemia [Unknown]
  - Foot fracture [Unknown]
  - Pleural effusion [Unknown]
  - Cardiomegaly [Unknown]
  - Floppy iris syndrome [Unknown]
  - Diastolic dysfunction [Unknown]
  - Cerumen impaction [Unknown]
  - Coccidioidomycosis [Unknown]
  - Joint swelling [Unknown]
  - Scoliosis [Unknown]
  - Aortic calcification [Unknown]
  - Intervertebral disc disorder [Unknown]
  - Pulmonary mass [Unknown]
  - Lung consolidation [Unknown]
  - Lung infiltration [Recovered/Resolved]
  - Dementia Alzheimer^s type [Unknown]
  - Prostatomegaly [Unknown]
  - Foot deformity [Unknown]
  - Peroneal nerve palsy [Unknown]
  - Neuropathy peripheral [Unknown]
  - Oedema [Unknown]
  - Hypoaesthesia [Unknown]
  - Aortic arteriosclerosis [Unknown]
  - Spinal deformity [Unknown]
  - Osteoarthritis [Unknown]
  - Soft tissue infection [Unknown]
  - Cellulitis [Unknown]
  - Epistaxis [Unknown]
  - Trigger finger [Unknown]
  - Myalgia [Unknown]
  - Acute myocardial infarction [Unknown]
